FAERS Safety Report 9363535 (Version 1)
Quarter: 2013Q2

REPORT INFORMATION
  Report Type: Spontaneous
  Country: GB (occurrence: GB)
  Receive Date: 20130624
  Receipt Date: 20130624
  Transmission Date: 20140414
  Serious: Yes (Hospitalization, Other)
  Sender: FDA-Public Use
  Company Number: GB-JNJFOC-20130611056

PATIENT
  Age: 54 Year
  Sex: Male
  Weight: 85 kg

DRUGS (11)
  1. XARELTO [Suspect]
     Indication: THROMBOSIS PROPHYLAXIS
     Route: 048
     Dates: start: 20130102, end: 20130403
  2. XARELTO [Suspect]
     Indication: PULMONARY EMBOLISM
     Route: 048
     Dates: start: 20130102, end: 20130403
  3. SIMVASTATIN [Concomitant]
     Route: 065
  4. PERINDOPRIL [Concomitant]
     Route: 065
  5. THIAMINE [Concomitant]
     Route: 065
  6. WARFARIN [Concomitant]
     Route: 065
  7. NICOTINAMIDE [Concomitant]
     Route: 065
  8. PYRIDOXINE HYDROCHLORIDE [Concomitant]
     Route: 065
  9. RIBOFLAVIN [Concomitant]
     Route: 065
  10. THIAMINE HYDROCHLORIDE [Concomitant]
     Route: 065
  11. BISOPROLOL [Concomitant]
     Route: 065

REACTIONS (1)
  - Headache [Recovered/Resolved]
